FAERS Safety Report 16281000 (Version 1)
Quarter: 2019Q2

REPORT INFORMATION
  Report Type: Spontaneous
  Country: US (occurrence: US)
  Receive Date: 20190402
  Receipt Date: 20190402
  Transmission Date: 20190711
  Serious: No
  Sender: FDA-Public Use
  Company Number: None

PATIENT
  Age: 59 Year
  Sex: Male

DRUGS (3)
  1. TALTZ [Suspect]
     Active Substance: IXEKIZUMAB
     Indication: RHEUMATOID ARTHRITIS
     Dosage: ?          OTHER FREQUENCY:WK 12THEN4WKSASDIR;?
     Route: 058
     Dates: start: 201904
  2. TALTZ [Suspect]
     Active Substance: IXEKIZUMAB
     Indication: PSORIATIC ARTHROPATHY
     Dosage: ?          OTHER FREQUENCY:WK 12THEN4WKSASDIR;?
     Route: 058
     Dates: start: 201904
  3. TALTZ [Suspect]
     Active Substance: IXEKIZUMAB
     Indication: SPONDYLOARTHROPATHY
     Dosage: ?          OTHER FREQUENCY:WK 12THEN4WKSASDIR;?
     Route: 058
     Dates: start: 201904

REACTIONS (1)
  - Off label use [None]
